FAERS Safety Report 18713250 (Version 2)
Quarter: 2021Q2

REPORT INFORMATION
  Report Type: Spontaneous
  Country: US (occurrence: US)
  Receive Date: 20210107
  Receipt Date: 20210412
  Transmission Date: 20210717
  Serious: Yes (Death, Hospitalization, Other)
  Sender: FDA-Public Use
  Company Number: US-BRISTOL-MYERS SQUIBB COMPANY-BMS-2021-000342

PATIENT
  Age: 79 Year
  Sex: Male

DRUGS (1)
  1. OPDIVO [Suspect]
     Active Substance: NIVOLUMAB
     Indication: NEOPLASM MALIGNANT
     Dosage: UNK, QMO
     Route: 042
     Dates: end: 2020

REACTIONS (5)
  - Hip fracture [Unknown]
  - Fall [Unknown]
  - Urinary tract infection [Unknown]
  - Malignant neoplasm progression [Fatal]
  - Dementia [Fatal]

NARRATIVE: CASE EVENT DATE: 202001
